FAERS Safety Report 9568141 (Version 2)
Quarter: 2013Q3

REPORT INFORMATION
  Report Type: Spontaneous
  Country: US (occurrence: US)
  Receive Date: 20130930
  Receipt Date: 20130930
  Transmission Date: 20140515
  Serious: No
  Sender: FDA-Public Use
  Company Number: US-AMGEN-USASP2013040536

PATIENT
  Age: 55 Year
  Sex: Male
  Weight: 106.58 kg

DRUGS (5)
  1. ENBREL [Suspect]
     Indication: RHEUMATOID ARTHRITIS
     Dosage: 50 MG, EVERY 7 DAYS
     Route: 058
     Dates: start: 20130517
  2. LOTREL [Concomitant]
     Dosage: 10-20 MG, UNK
  3. COLCHICINE [Concomitant]
     Dosage: 0.6 MG, UNK
  4. ULORIC [Concomitant]
     Dosage: 40 MG, UNK
  5. VITAMIN D                          /00107901/ [Concomitant]
     Dosage: 1000 UNIT, UNK

REACTIONS (6)
  - Arthralgia [Not Recovered/Not Resolved]
  - Drug ineffective [Not Recovered/Not Resolved]
  - Pain in extremity [Not Recovered/Not Resolved]
  - Musculoskeletal pain [Not Recovered/Not Resolved]
  - Injection site erythema [Recovered/Resolved]
  - Injection site reaction [Recovered/Resolved]
